FAERS Safety Report 8597531-X (Version None)
Quarter: 2012Q3

REPORT INFORMATION
  Report Type: 
  Country: None (occurrence: None)
  Receive Date: 20120816
  Receipt Date: 20120806
  Transmission Date: 20120928
  Serious: Yes (Hospitalization, Other)
  Sender: FDA-Public Use
  Company Number: US-BAYER-2012-049616

PATIENT
  Age: 24 Year
  Sex: Female
  Weight: 61.224 kg

DRUGS (9)
  1. YAZ [Suspect]
     Dosage: UNK
     Dates: start: 20080101, end: 20100401
  2. DILAUDID [Concomitant]
  3. ATIVAN [Concomitant]
     Indication: HEADACHE
  4. YASMIN [Suspect]
     Dosage: UNK
     Dates: start: 20080101, end: 20100401
  5. TORADOL [Concomitant]
  6. I.V. SOLUTIONS [Concomitant]
  7. DROSPIRENONE AND ETHINYL ESTRADIOL [Suspect]
     Dosage: UNK
     Dates: start: 20080101, end: 20100401
  8. PHENERGAN HCL [Concomitant]
  9. KEPPRA [Concomitant]
     Indication: CONVULSION
     Dosage: 500 MG, BID

REACTIONS (8)
  - CEREBROVASCULAR ACCIDENT [None]
  - PAIN [None]
  - ANXIETY [None]
  - EMOTIONAL DISTRESS [None]
  - SUBARACHNOID HAEMORRHAGE [None]
  - INJURY [None]
  - GENERAL PHYSICAL HEALTH DETERIORATION [None]
  - CEREBRAL HAEMATOMA [None]
